FAERS Safety Report 16169323 (Version 1)
Quarter: 2019Q2

REPORT INFORMATION
  Report Type: Spontaneous
  Country: US (occurrence: US)
  Receive Date: 20190406
  Receipt Date: 20190406
  Transmission Date: 20190711
  Serious: Yes (Disabling)
  Sender: FDA-Public Use
  Company Number: None

PATIENT
  Age: 42 Year
  Sex: Female
  Weight: 103.5 kg

DRUGS (1)
  1. CIPROFLOXACIN. [Suspect]
     Active Substance: CIPROFLOXACIN
     Indication: SINUSITIS
     Route: 048
     Dates: start: 20170812, end: 20170815

REACTIONS (13)
  - Hypersensitivity [None]
  - Disability [None]
  - Loss of personal independence in daily activities [None]
  - Abdominal discomfort [None]
  - Photosensitivity reaction [None]
  - Ill-defined disorder [None]
  - Toxicity to various agents [None]
  - Cognitive disorder [None]
  - Insomnia [None]
  - Eating disorder [None]
  - Muscle spasms [None]
  - Mental disorder [None]
  - Bowel movement irregularity [None]

NARRATIVE: CASE EVENT DATE: 20170814
